FAERS Safety Report 7030373-5 (Version None)
Quarter: 2010Q4

REPORT INFORMATION
  Report Type: 
  Country: None (occurrence: None)
  Receive Date: 20101006
  Receipt Date: 20100924
  Transmission Date: 20110411
  Serious: No
  Sender: FDA-Public Use
  Company Number: CA-ELI_LILLY_AND_COMPANY-CA201007002991

PATIENT
  Sex: Female

DRUGS (10)
  1. FORTEO [Suspect]
     Indication: OSTEOPOROSIS
     Dosage: 20 UG, DAILY (1/D)
     Route: 058
     Dates: start: 20060101
  2. FORTEO [Suspect]
     Dosage: 20 UG, DAILY (1/D)
     Route: 058
     Dates: start: 20100614
  3. TEGRETOL [Concomitant]
  4. CORTISONE ACETATE [Concomitant]
  5. SYNTHROID [Concomitant]
  6. SERTRALINE HYDROCHLORIDE [Concomitant]
  7. CLONAZEPAM [Concomitant]
  8. ALVESCO [Concomitant]
  9. CELEBREX [Concomitant]
     Dosage: UNK, AS NEEDED
  10. ATIVAN [Concomitant]
     Dosage: UNK, AS NEEDED

REACTIONS (2)
  - DEHYDRATION [None]
  - INCORRECT DOSE ADMINISTERED [None]
